FAERS Safety Report 7770281-5 (Version None)
Quarter: 2011Q3

REPORT INFORMATION
  Report Type: 
  Country: None (occurrence: None)
  Receive Date: 20110922
  Receipt Date: 20110127
  Transmission Date: 20111222
  Serious: No
  Sender: FDA-Public Use
  Company Number: US-ASTRAZENECA-2011SE04772

PATIENT
  Age: 14 Year
  Sex: Male
  Weight: 102.1 kg

DRUGS (3)
  1. SEROQUEL XR [Suspect]
     Indication: OPPOSITIONAL DEFIANT DISORDER
     Dosage: 300 MG  TWO TIMES A DAY
     Route: 048
     Dates: end: 20110101
  2. SEROQUEL XR [Suspect]
     Indication: ATTENTION DEFICIT/HYPERACTIVITY DISORDER
     Dosage: 300 MG  TWO TIMES A DAY
     Route: 048
     Dates: end: 20110101
  3. STRATTERA [Concomitant]
     Indication: PSYCHOMOTOR HYPERACTIVITY

REACTIONS (3)
  - INDIFFERENCE [None]
  - DYSKINESIA [None]
  - ABNORMAL BEHAVIOUR [None]
